FAERS Safety Report 4346818-5 (Version None)
Quarter: 2004Q1

REPORT INFORMATION
  Report Type: 
  Country: None (occurrence: None)
  Receive Date: 20040329
  Receipt Date: 20031210
  Transmission Date: 20041129
  Serious: No
  Sender: FDA-Public Use
  Company Number: USA031254495

PATIENT
  Age: 30 Year
  Sex: Male
  Weight: 103 kg

DRUGS (1)
  1. STRATTERA [Suspect]
     Indication: ATTENTION DEFICIT/HYPERACTIVITY DISORDER
     Dosage: 40 MG/IN THE MORNING
     Dates: start: 20031206

REACTIONS (3)
  - ERECTILE DYSFUNCTION [None]
  - MALE ORGASMIC DISORDER [None]
  - WEIGHT DECREASED [None]
